FAERS Safety Report 23501929 (Version 1)
Quarter: 2024Q1

REPORT INFORMATION
  Report Type: Spontaneous
  Country: CA (occurrence: CA)
  Receive Date: 20240208
  Receipt Date: 20240208
  Transmission Date: 20240410
  Serious: Yes (Other)
  Sender: FDA-Public Use
  Company Number: CA-PFIZER INC-202400035079

PATIENT
  Age: 53 Year

DRUGS (5)
  1. METHOTREXATE SODIUM [Suspect]
     Active Substance: METHOTREXATE SODIUM
     Indication: Immune-mediated vasculitis
     Dosage: 20 MG, WEEKLY
     Route: 048
     Dates: start: 202309
  2. METHOTREXATE SODIUM [Suspect]
     Active Substance: METHOTREXATE SODIUM
     Indication: Immunoglobulin G4 related disease
     Dosage: 25 MG, WEEKLY
     Route: 048
     Dates: start: 202310, end: 202401
  3. FOLIC ACID [Concomitant]
     Active Substance: FOLIC ACID
     Dosage: UNK
  4. PREDNISONE [Concomitant]
     Active Substance: PREDNISONE
     Dosage: 15 MG
  5. RABEPRAZOLE [Concomitant]
     Active Substance: RABEPRAZOLE
     Dosage: 20 MG, 1X/DAY
     Route: 048

REACTIONS (6)
  - Hydronephrosis [Unknown]
  - Drug ineffective [Unknown]
  - Off label use [Unknown]
  - Pelvic mass [Not Recovered/Not Resolved]
  - Granuloma [Unknown]
  - Condition aggravated [Unknown]

NARRATIVE: CASE EVENT DATE: 20231001
